FAERS Safety Report 8818071 (Version 2)
Quarter: 2012Q4

REPORT INFORMATION
  Report Type: 
  Country: AU (occurrence: AU)
  Receive Date: 20121001
  Receipt Date: 20121129
  Transmission Date: 20130627
  Serious: Yes (Death)
  Sender: FDA-Public Use
  Company Number: AU-B.I. PHARMACEUTICALS,INC./RIDGEFIELD-2012-AU-01687AU

PATIENT
  Age: 61 Year
  Sex: Male

DRUGS (6)
  1. PRADAXA [Suspect]
     Indication: ATRIAL FIBRILLATION
     Dosage: 300 mg
     Dates: start: 201108, end: 20120722
  2. BETALOC [Concomitant]
     Dosage: 200 mg
  3. AVAPRO HCT [Concomitant]
     Dosage: 300/12.5
  4. LANOXIN [Concomitant]
     Dosage: 250 mcg
  5. ACIMAX [Concomitant]
     Dosage: 20 mg
  6. PRAVACHOL [Concomitant]
     Dosage: 20 mg

REACTIONS (2)
  - Cardiogenic shock [Fatal]
  - Myocardial infarction [Fatal]
